FAERS Safety Report 8861643 (Version 1)
Quarter: 2012Q4

REPORT INFORMATION
  Report Type: 
  Country: US (occurrence: US)
  Receive Date: 20121025
  Receipt Date: 20121025
  Transmission Date: 20130627
  Serious: No
  Sender: FDA-Public Use
  Company Number: US-AMGEN-USASP2012019083

PATIENT
  Age: 61 Year
  Sex: Female
  Weight: 117.91 kg

DRUGS (16)
  1. ENBREL [Suspect]
     Indication: PRODUCT USED FOR UNKNOWN INDICATION
     Dosage: 50 mg, 2 times/wk
     Route: 058
  2. COLACE [Concomitant]
     Dosage: 100 mg, UNK
  3. GABAPENTIN [Concomitant]
     Dosage: 100 mg, UNK
  4. HYDROMORPHONE [Concomitant]
  5. METHADONE [Concomitant]
     Dosage: 5 mg, UNK
  6. DOXYCYCLINE MONOHYDRATE [Concomitant]
     Dosage: 100 mg, UNK
  7. FUROSEMIDE [Concomitant]
     Dosage: 20 mg, UNK
  8. PANTOPRAZOLE [Concomitant]
     Dosage: 20 mg, UNK
  9. FERROUS SULFATE [Concomitant]
     Dosage: UNK
  10. FLUOXETINE [Concomitant]
     Dosage: 10 mg, UNK
  11. METHOTREXATE [Concomitant]
     Dosage: 2.5 mg, UNK
  12. MULTIVITAMIN                       /00097801/ [Concomitant]
  13. POTASSIUM [Concomitant]
     Dosage: 95 mg, UNK
  14. FOLIC ACID [Concomitant]
  15. PREDNISONE [Concomitant]
     Dosage: 1 mg, UNK
  16. SENNA                              /00142201/ [Concomitant]
     Dosage: 8.6 mg, UNK

REACTIONS (1)
  - Knee arthroplasty [Unknown]
